FAERS Safety Report 17751726 (Version 1)
Quarter: 2020Q2

REPORT INFORMATION
  Report Type: Report from Study
  Country: AU (occurrence: AU)
  Receive Date: 20200506
  Receipt Date: 20200506
  Transmission Date: 20200714
  Serious: Yes (Other)
  Sender: FDA-Public Use
  Company Number: PHHY2018AU073870

PATIENT
  Sex: Female

DRUGS (2)
  1. COSENTYX [Suspect]
     Active Substance: SECUKINUMAB
     Dosage: 150 MG, QMO
     Route: 058
     Dates: start: 20180809
  2. COSENTYX [Suspect]
     Active Substance: SECUKINUMAB
     Indication: PSORIATIC ARTHROPATHY
     Dosage: 150 MG, QMO
     Route: 058
     Dates: start: 20180709

REACTIONS (9)
  - Uveitis [Unknown]
  - Nasopharyngitis [Unknown]
  - Malaise [Unknown]
  - Dizziness [Unknown]
  - Eye swelling [Unknown]
  - Sinus congestion [Unknown]
  - Gait disturbance [Unknown]
  - Abnormal dreams [Unknown]
  - Disorientation [Unknown]
